FAERS Safety Report 9821019 (Version 1)
Quarter: 2014Q1

REPORT INFORMATION
  Report Type: Spontaneous
  Country: US (occurrence: None)
  Receive Date: 20140115
  Receipt Date: 20140115
  Transmission Date: 20141002
  Serious: Yes (Other)
  Sender: FDA-Public Use
  Company Number: None

PATIENT
  Age: 69 Year
  Sex: Male
  Weight: 79.83 kg

DRUGS (2)
  1. ZYTIGA [Suspect]
     Indication: PROSTATE CANCER
     Dosage: 4 PILLS QD ORAL
     Route: 048
     Dates: start: 20130819, end: 20140114
  2. RADIATION SHOT [Concomitant]

REACTIONS (2)
  - Skin discolouration [None]
  - Skin exfoliation [None]
